FAERS Safety Report 5360783-3 (Version None)
Quarter: 2007Q2

REPORT INFORMATION
  Report Type: 
  Country: None (occurrence: None)
  Receive Date: 20070618
  Receipt Date: 20070606
  Transmission Date: 20071010
  Serious: Yes (Other)
  Sender: FDA-Public Use
  Company Number: JP-SANOFI-SYNTHELABO-A01200704330

PATIENT
  Age: 28 Year
  Sex: Male

DRUGS (13)
  1. DANTRIUM [Concomitant]
     Indication: DRUG USE FOR UNKNOWN INDICATION
     Dosage: 40 MG
     Route: 042
     Dates: start: 20070418, end: 20070418
  2. VEGETAMIN A [Concomitant]
     Indication: DRUG USE FOR UNKNOWN INDICATION
     Dosage: 1 UNIT
     Route: 048
     Dates: end: 20070412
  3. GOODMIN [Concomitant]
     Indication: DRUG USE FOR UNKNOWN INDICATION
     Dosage: 0.25 MG
     Route: 048
     Dates: end: 20070412
  4. ROHYPNOL [Concomitant]
     Indication: DRUG USE FOR UNKNOWN INDICATION
     Dosage: 4 MG
     Route: 048
     Dates: end: 20070412
  5. ROHYPNOL [Concomitant]
     Dosage: 1 ML
     Route: 065
     Dates: start: 20070416, end: 20070416
  6. TOLEDOMIN [Concomitant]
     Indication: DRUG USE FOR UNKNOWN INDICATION
     Dosage: 100 MG
     Route: 048
     Dates: end: 20070412
  7. LEXOTAN [Concomitant]
     Indication: DRUG USE FOR UNKNOWN INDICATION
     Dosage: 10 MG
     Route: 048
     Dates: end: 20070412
  8. PENTAZOCINE LACTATE [Suspect]
     Indication: ANALGESIC EFFECT
     Dosage: UNK
     Route: 042
     Dates: start: 20070212
  9. PENTAZOCINE LACTATE [Suspect]
     Route: 042
     Dates: start: 20070413
  10. PENTAZOCINE LACTATE [Suspect]
     Route: 042
     Dates: start: 20070416, end: 20070416
  11. OLANZAPINE [Concomitant]
     Indication: DRUG USE FOR UNKNOWN INDICATION
     Dosage: 2.5 MG
     Route: 048
     Dates: end: 20070412
  12. EVAMYL [Concomitant]
     Indication: DRUG USE FOR UNKNOWN INDICATION
     Dosage: 2 MG
     Route: 048
     Dates: end: 20070412
  13. HALOPERIDOL [Suspect]
     Indication: DRUG USE FOR UNKNOWN INDICATION
     Dosage: 10 ML
     Route: 065
     Dates: start: 20070416, end: 20070416

REACTIONS (7)
  - BLOOD CREATINE PHOSPHOKINASE INCREASED [None]
  - BODY TEMPERATURE INCREASED [None]
  - HYPERHIDROSIS [None]
  - MUSCLE TIGHTNESS [None]
  - NEUROLEPTIC MALIGNANT SYNDROME [None]
  - TONIC CONVULSION [None]
  - TREMOR [None]
